FAERS Safety Report 5674465-1 (Version None)
Quarter: 2008Q2

REPORT INFORMATION
  Report Type: 
  Country: None (occurrence: None)
  Receive Date: 20080303
  Receipt Date: 20070503
  Transmission Date: 20081010
  Serious: Yes (Other)
  Sender: FDA-Public Use
  Company Number: MK-6033190

PATIENT
  Age: 33 Year
  Sex: Female

DRUGS (3)
  1. AMNESTEEM [Suspect]
     Indication: ACNE CYSTIC
     Dosage: 80 MG;DAILY
     Dates: start: 20070326, end: 20070430
  2. XANAX [Concomitant]
  3. PAXIL [Concomitant]

REACTIONS (1)
  - HEPATIC ENZYME INCREASED [None]
